FAERS Safety Report 7603481-5 (Version None)
Quarter: 2011Q3

REPORT INFORMATION
  Report Type: 
  Country: None (occurrence: None)
  Receive Date: 20110712
  Receipt Date: 20110629
  Transmission Date: 20111222
  Serious: Yes (Hospitalization)
  Sender: FDA-Public Use
  Company Number: US-JNJFOC-20110702694

PATIENT
  Age: 75 Year
  Sex: Female
  Weight: 66.68 kg

DRUGS (3)
  1. ACETAMINOPHEN [Suspect]
     Indication: ANALGESIC THERAPY
     Dosage: 2 AT NIGHT (1000MG), 1 OR 2 TIMES A WEEK
     Route: 048
     Dates: start: 19990101, end: 20110401
  2. ACETAMINOPHEN [Suspect]
     Route: 048
  3. RAMIPRIL [Concomitant]
     Indication: HYPERTENSION

REACTIONS (3)
  - HYPERTENSION [None]
  - PRODUCT QUALITY ISSUE [None]
  - CARDIAC DISORDER [None]
